FAERS Safety Report 17878285 (Version 14)
Quarter: 2021Q4

REPORT INFORMATION
  Report Type: Report from Study
  Country: PE (occurrence: PE)
  Receive Date: 20200610
  Receipt Date: 20211022
  Transmission Date: 20220303
  Serious: Yes (Death, Life-Threatening, Hospitalization)
  Sender: FDA-Public Use
  Company Number: PE-ROCHE-2616694

PATIENT
  Age: 59 Year
  Sex: Female
  Weight: 75 kg

DRUGS (12)
  1. IPATASERTIB [Suspect]
     Active Substance: IPATASERTIB
     Indication: Breast cancer metastatic
     Dosage: DATE OF MOST RECENT DOSE OF IPATASERTIB 300 MG PRIOR TO AE ONSET: 04/JUN/2020?DATE OF MOST RECENT DO
     Route: 048
     Dates: start: 20191227
  2. ATEZOLIZUMAB [Suspect]
     Active Substance: ATEZOLIZUMAB
     Indication: Breast cancer metastatic
     Dosage: DATE OF MOST RECENT DOSE OF ATEZOLIZUMAB PRIOR TO PULMONAR THROMBOEMBOLIA ONSET: 28/MAY/2020 (840 MG
     Route: 041
     Dates: start: 20191227
  3. LOPERAMIDE [Suspect]
     Active Substance: LOPERAMIDE
     Indication: Breast cancer metastatic
     Dosage: DATE OF MOST RECENT DOSE OF LOPERAMIDE PRIOR TO AE ONSET: 07/MAY/2020 (4 MG)
     Route: 048
     Dates: start: 20191227
  4. PACLITAXEL [Suspect]
     Active Substance: PACLITAXEL
     Indication: Breast cancer metastatic
     Dosage: DATE OF MOST RECENT DOSE (80 MG/M2) ADMINISTERED OF PACLITAXEL PRIOR TO AE/SAE ONSET WAS 28/MAY/2020
     Route: 042
     Dates: start: 20191227
  5. DIMENHYDRINATE [Concomitant]
     Active Substance: DIMENHYDRINATE
     Indication: Arthralgia
     Route: 048
     Dates: start: 20191203
  6. DIMENHYDRINATE [Concomitant]
     Active Substance: DIMENHYDRINATE
     Indication: Nausea
  7. TRAMADOL [Concomitant]
     Active Substance: TRAMADOL
     Indication: Arthralgia
     Route: 048
     Dates: start: 20191203
  8. LEVOTHYROXINE [Concomitant]
     Active Substance: LEVOTHYROXINE
     Indication: Hyperthyroidism
     Route: 048
     Dates: start: 201902
  9. LEVOTHYROXINE [Concomitant]
     Active Substance: LEVOTHYROXINE
     Route: 048
     Dates: start: 20200602
  10. MORPHINE [Concomitant]
     Active Substance: MORPHINE
     Route: 048
     Dates: start: 20200605, end: 20200606
  11. DEXAMETHASONE [Concomitant]
     Active Substance: DEXAMETHASONE
     Route: 048
     Dates: start: 20200605, end: 20200606
  12. OMEPRAZOLE [Concomitant]
     Active Substance: OMEPRAZOLE
     Indication: Prophylaxis
     Route: 048
     Dates: start: 20200605, end: 20200606

REACTIONS (2)
  - Pulmonary embolism [Fatal]
  - Myocarditis [Not Recovered/Not Resolved]

NARRATIVE: CASE EVENT DATE: 20200602
